FAERS Safety Report 24384258 (Version 1)
Quarter: 2024Q4

REPORT INFORMATION
  Report Type: Spontaneous
  Country: US (occurrence: US)
  Receive Date: 20241001
  Receipt Date: 20241001
  Transmission Date: 20250115
  Serious: Yes (Other)
  Sender: PFIZER
  Company Number: US-PFIZER INC-202400265946

PATIENT
  Age: 69 Year
  Sex: Female

DRUGS (1)
  1. XELJANZ XR [Suspect]
     Active Substance: TOFACITINIB CITRATE
     Dosage: 11 MG 1 TABLET ORALLY ONCE A DAY
     Route: 048

REACTIONS (5)
  - Coronary artery disease [Unknown]
  - Arthralgia [Unknown]
  - Depression [Recovered/Resolved]
  - Joint swelling [Unknown]
  - Pain [Unknown]
